FAERS Safety Report 20222475 (Version 3)
Quarter: 2023Q2

REPORT INFORMATION
  Report Type: Spontaneous
  Country: CH (occurrence: CH)
  Receive Date: 20211223
  Receipt Date: 20230606
  Transmission Date: 20230722
  Serious: Yes (Other)
  Sender: FDA-Public Use
  Company Number: CH-NOVARTISPH-NVSC2021CH279277

PATIENT
  Age: 64 Year
  Sex: Male

DRUGS (6)
  1. TASIGNA [Suspect]
     Active Substance: NILOTINIB
     Indication: Chronic myeloid leukaemia
     Dosage: 400 MG, BID
     Route: 048
     Dates: start: 20200420, end: 20200424
  2. TASIGNA [Suspect]
     Active Substance: NILOTINIB
     Dosage: 200 MG, BID
     Route: 048
     Dates: start: 20200427, end: 20200504
  3. TASIGNA [Suspect]
     Active Substance: NILOTINIB
     Dosage: 300 MG, BID
     Route: 048
     Dates: start: 20200505, end: 20200518
  4. TASIGNA [Suspect]
     Active Substance: NILOTINIB
     Dosage: 200 MG, BID
     Route: 048
     Dates: start: 20200519, end: 20210204
  5. LISINOPRIL [Concomitant]
     Active Substance: LISINOPRIL
     Indication: Product used for unknown indication
     Dosage: 10 MG, QD
     Route: 048
     Dates: start: 2013
  6. CHLORAZEPAM [Concomitant]
     Active Substance: CHLORAZEPAM
     Indication: Tinnitus
     Dosage: 10 MG, QD (AT BEDTIME)
     Route: 065

REACTIONS (8)
  - Drug intolerance [Recovered/Resolved]
  - Hepatotoxicity [Recovered/Resolved]
  - Pancreatic toxicity [Recovered/Resolved]
  - Pleural effusion [Recovered/Resolved]
  - Hyperbilirubinaemia [Unknown]
  - Hepatitis [Unknown]
  - Pancreatitis [Unknown]
  - Toxicity to various agents [Unknown]

NARRATIVE: CASE EVENT DATE: 20200420
